FAERS Safety Report 8445159-4 (Version None)
Quarter: 2012Q2

REPORT INFORMATION
  Report Type: 
  Country: None (occurrence: None)
  Receive Date: 20120605
  Receipt Date: 20120531
  Transmission Date: 20120825
  Serious: Yes (Hospitalization)
  Sender: FDA-Public Use
  Company Number: A0979682A

PATIENT
  Age: 63 Year
  Sex: Male

DRUGS (4)
  1. OMEPRAZOLE [Suspect]
     Indication: OESOPHAGITIS
     Dosage: 20 MG / TWICE PER DAY
  2. RANITIDINE HYDROCHLORIDE [Suspect]
     Indication: OESOPHAGITIS
  3. LANSOPRAZOLE [Suspect]
     Indication: OESOPHAGITIS
     Dosage: 30 MG
  4. ETHANOL (FORMULATION UNKNOWN) (ALCOHOL) [Suspect]
     Indication: ALCOHOL USE
     Dosage: 42 UNIT / WEEKLY / ORAL
     Route: 048

REACTIONS (18)
  - HYPOMAGNESAEMIA [None]
  - LETHARGY [None]
  - MYOCLONUS [None]
  - BLOOD LACTIC ACID INCREASED [None]
  - BLOOD BICARBONATE DECREASED [None]
  - BLOOD CALCIUM DECREASED [None]
  - VOMITING [None]
  - HEART RATE INCREASED [None]
  - CONVULSION [None]
  - GASTRITIS EROSIVE [None]
  - DIARRHOEA [None]
  - PO2 INCREASED [None]
  - BASE EXCESS DECREASED [None]
  - BLOOD PH DECREASED [None]
  - DEHYDRATION [None]
  - NEUTROPHIL COUNT INCREASED [None]
  - BARRETT'S OESOPHAGUS [None]
  - PRERENAL FAILURE [None]
